FAERS Safety Report 6454175-3 (Version None)
Quarter: 2009Q4

REPORT INFORMATION
  Report Type: 
  Country: None (occurrence: None)
  Receive Date: 20091117
  Receipt Date: 20091030
  Transmission Date: 20100525
  Serious: Yes (Other)
  Sender: FDA-Public Use
  Company Number: 20090092

PATIENT
  Age: 72 Year
  Sex: Female

DRUGS (2)
  1. MORRHUATE SODIUM INJECTION, USP (3065-01) 5% [Suspect]
     Indication: VARICOSE VEIN
     Dosage: 75MG IN 0.5CC SALINE
     Dates: start: 20080905, end: 20080905
  2. CALAN [Concomitant]

REACTIONS (16)
  - ASTHENIA [None]
  - AUTOIMMUNE DISORDER [None]
  - CHEST DISCOMFORT [None]
  - CHEST PAIN [None]
  - CHONDROPATHY [None]
  - DISCOMFORT [None]
  - INJECTION SITE DISCOLOURATION [None]
  - INJECTION SITE HAEMATOMA [None]
  - INSOMNIA [None]
  - MIXED CONNECTIVE TISSUE DISEASE [None]
  - MUSCLE ATROPHY [None]
  - MUSCULAR WEAKNESS [None]
  - MYALGIA [None]
  - NEURALGIA [None]
  - PAIN [None]
  - PAIN IN EXTREMITY [None]
